FAERS Safety Report 5947751-5 (Version None)
Quarter: 2008Q4

REPORT INFORMATION
  Report Type: 
  Country: None (occurrence: None)
  Receive Date: 20081110
  Receipt Date: 20081110
  Transmission Date: 20090506
  Serious: Yes (Other)
  Sender: FDA-Public Use
  Company Number: None

PATIENT
  Age: 18 Year
  Sex: Female
  Weight: 76.2043 kg

DRUGS (1)
  1. MIRENA [Suspect]
     Dosage: INTRA-UTERINE
     Route: 015
     Dates: start: 20080731, end: 20081107

REACTIONS (2)
  - DEVICE BREAKAGE [None]
  - INTRA-UTERINE CONTRACEPTIVE DEVICE EXPELLED [None]
